FAERS Safety Report 21056491 (Version 1)
Quarter: 2022Q3

REPORT INFORMATION
  Report Type: Report from Study
  Country: AR (occurrence: AR)
  Receive Date: 20220708
  Receipt Date: 20220708
  Transmission Date: 20221026
  Serious: Yes (Other)
  Sender: FDA-Public Use
  Company Number: AR-NOVARTISPH-NVSC2022AR120109

PATIENT
  Age: 53 Year
  Sex: Male

DRUGS (3)
  1. SANDOSTATIN LAR DEPOT [Suspect]
     Active Substance: OCTREOTIDE ACETATE
     Indication: Neuroendocrine tumour
     Dosage: 30 MG, (EVERY 28 DAYS)
     Route: 030
     Dates: start: 201901, end: 20220509
  2. SANDOSTATIN LAR DEPOT [Suspect]
     Active Substance: OCTREOTIDE ACETATE
     Dosage: 30 MG, (EVERY 28 DAYS)
     Route: 030
     Dates: start: 20220523
  3. SANDOSTATIN LAR DEPOT [Suspect]
     Active Substance: OCTREOTIDE ACETATE

REACTIONS (10)
  - Angioedema [Recovered/Resolved]
  - Neoplasm recurrence [Recovered/Resolved]
  - Vasodilatation [Recovered/Resolved]
  - Ocular hyperaemia [Recovered/Resolved]
  - Cardiovascular disorder [Recovered/Resolved]
  - General physical health deterioration [Recovered/Resolved]
  - Erythema [Recovered/Resolved]
  - Dyspnoea [Recovered/Resolved]
  - Flushing [Recovered/Resolved]
  - Product availability issue [Unknown]

NARRATIVE: CASE EVENT DATE: 20220519
